FAERS Safety Report 5161619-6 (Version None)
Quarter: 2006Q4

REPORT INFORMATION
  Report Type: 
  Country: None (occurrence: None)
  Receive Date: 20061130
  Receipt Date: 20060728
  Transmission Date: 20070319
  Serious: No
  Sender: FDA-Public Use
  Company Number: US-BRISTOL-MYERS SQUIBB COMPANY-13459102

PATIENT
  Age: 65 Year
  Sex: Female
  Weight: 56 kg

DRUGS (5)
  1. ETOPOSIDE [Suspect]
     Indication: SMALL CELL LUNG CANCER STAGE UNSPECIFIED
     Route: 042
     Dates: start: 20060727, end: 20060727
  2. CARBOPLATIN [Concomitant]
     Indication: SMALL CELL LUNG CANCER STAGE UNSPECIFIED
  3. ANZEMET [Concomitant]
     Route: 042
  4. DECADRON [Concomitant]
     Route: 042
  5. FOSAMAX [Concomitant]
     Dates: start: 20060301

REACTIONS (1)
  - OVERDOSE [None]
